FAERS Safety Report 10904756 (Version 2)
Quarter: 2015Q2

REPORT INFORMATION
  Report Type: Spontaneous
  Country: GB (occurrence: GB)
  Receive Date: 20150311
  Receipt Date: 20150515
  Transmission Date: 20150821
  Serious: Yes (Death, Other)
  Sender: FDA-Public Use
  Company Number: GB-CIPLA LTD.-2015GB01745

PATIENT

DRUGS (8)
  1. LAMOTRIGINE. [Suspect]
     Active Substance: LAMOTRIGINE
     Dosage: 25 MG OD FOR 2 WEEKS THEN 50MG OD FOR 2 WEEKS THEN 100MG ONCE DAILY 05 02 15
     Route: 048
     Dates: start: 20150207, end: 20150209
  2. QUETIAPINE [Suspect]
     Active Substance: QUETIAPINE
     Dosage: 500 MG ONCE AT NIGHT PLUS 25-50 MG THREE TIMES DAILY / AS NECESSARY
     Dates: start: 201502
  3. QUETIAPINE [Suspect]
     Active Substance: QUETIAPINE
     Indication: BIPOLAR I DISORDER
     Dosage: 25 -50 MG THREE TIMES DAILY/AS NECESSARY
     Dates: start: 20150204
  4. MIRTAZAPINE. [Suspect]
     Active Substance: MIRTAZAPINE
     Indication: BIPOLAR I DISORDER
  5. LAMOTRIGINE. [Suspect]
     Active Substance: LAMOTRIGINE
     Indication: BIPOLAR I DISORDER
     Dosage: 25 MG, QD
     Route: 048
     Dates: start: 20150106
  6. LAMOTRIGINE. [Suspect]
     Active Substance: LAMOTRIGINE
     Dosage: 50 MG, QD, 2 WEEKS
     Route: 048
     Dates: start: 201501
  7. LORAZEPAM. [Concomitant]
     Active Substance: LORAZEPAM
     Indication: ANXIETY
     Dosage: 0.5- 1 MG TWICE DAILY /AS NECESSARY FOR THREE DAYS
     Dates: start: 20150204
  8. QUETIAPINE [Suspect]
     Active Substance: QUETIAPINE
     Dosage: 400 MG ONCE AT NIGHT PLUS 25-50 MG THREE TIMES / AS NECESSARY
     Dates: start: 20150204, end: 201502

REACTIONS (6)
  - Cardiac arrest [Not Recovered/Not Resolved]
  - Depression [Not Recovered/Not Resolved]
  - Persecutory delusion [Not Recovered/Not Resolved]
  - Seizure [Not Recovered/Not Resolved]
  - Overdose [Fatal]
  - Paranoia [Not Recovered/Not Resolved]

NARRATIVE: CASE EVENT DATE: 20150204
